FAERS Safety Report 23859724 (Version 6)
Quarter: 2024Q3

REPORT INFORMATION
  Report Type: Report from Study
  Country: CO (occurrence: CO)
  Receive Date: 20240515
  Receipt Date: 20240830
  Transmission Date: 20241016
  Serious: Yes (Hospitalization, Other)
  Sender: AEGERION
  Company Number: CO-AMRYT PHARMACEUTICALS DAC-AEGR007117

PATIENT

DRUGS (3)
  1. MYALEPT [Suspect]
     Active Substance: METRELEPTIN
     Indication: Congenital generalised lipodystrophy
     Dosage: 5 MILLIGRAM
     Route: 058
     Dates: start: 20210323, end: 20240501
  2. MYALEPT [Suspect]
     Active Substance: METRELEPTIN
     Dosage: 5 MILLIGRAM
     Route: 058
     Dates: start: 20210323, end: 20240622
  3. MYALEPT [Suspect]
     Active Substance: METRELEPTIN
     Dosage: 5 MILLIGRAM
     Route: 058
     Dates: start: 20210323

REACTIONS (8)
  - Respiratory distress [Unknown]
  - Pharyngeal stenosis [Unknown]
  - Laryngeal stenosis [Unknown]
  - Vomiting [Unknown]
  - Diarrhoea [Unknown]
  - Blood glucose decreased [Unknown]
  - Influenza [Unknown]
  - Therapy interrupted [Unknown]

NARRATIVE: CASE EVENT DATE: 20240501
